FAERS Safety Report 20354725 (Version 1)
Quarter: 2022Q1

REPORT INFORMATION
  Report Type: Spontaneous
  Country: SE (occurrence: SE)
  Receive Date: 20220120
  Receipt Date: 20220120
  Transmission Date: 20220423
  Serious: Yes (Death, Hospitalization, Other)
  Sender: FDA-Public Use
  Company Number: SE-UCBSA-2022001299

PATIENT
  Sex: Female

DRUGS (11)
  1. NEUPRO [Suspect]
     Active Substance: ROTIGOTINE
     Indication: Product used for unknown indication
     Dosage: 8 MILLIGRAM, ONCE DAILY (QD)
  2. CARBIDOPA\LEVODOPA [Suspect]
     Active Substance: CARBIDOPA\LEVODOPA
     Indication: Parkinson^s disease
     Dosage: THERAPY DURATION: REMAINED AT 24H, 20 MG/ML 5 MG/ML
     Dates: start: 20160125, end: 20211220
  3. FOLIC ACID [Concomitant]
     Active Substance: FOLIC ACID
     Indication: Product used for unknown indication
  4. POTASSIUM CHLORIDE [Concomitant]
     Active Substance: POTASSIUM CHLORIDE
     Indication: Product used for unknown indication
  5. CYANOCOBALAMIN [Concomitant]
     Active Substance: CYANOCOBALAMIN
     Indication: Product used for unknown indication
  6. OMEPRAZOLE [Concomitant]
     Active Substance: OMEPRAZOLE
     Indication: Product used for unknown indication
  7. ACETAMINOPHEN [Concomitant]
     Active Substance: ACETAMINOPHEN
     Indication: Product used for unknown indication
  8. MIRABEGRON [Concomitant]
     Active Substance: MIRABEGRON
     Indication: Product used for unknown indication
  9. CITALOPRAM [Concomitant]
     Active Substance: CITALOPRAM HYDROBROMIDE
     Indication: Product used for unknown indication
  10. CHOLECALCIFEROL [Concomitant]
     Active Substance: CHOLECALCIFEROL
     Indication: Product used for unknown indication
  11. ASPIRIN [Concomitant]
     Active Substance: ASPIRIN
     Indication: Product used for unknown indication
     Dates: start: 202108

REACTIONS (31)
  - Arrhythmia [Fatal]
  - Impaired quality of life [Fatal]
  - Cerebrovascular accident [Fatal]
  - Dysphagia [Unknown]
  - Aortic valve sclerosis [Unknown]
  - Head injury [Unknown]
  - Decreased appetite [Unknown]
  - Hemiparesis [Unknown]
  - Fluid intake reduced [Unknown]
  - Aphasia [Unknown]
  - Hypophagia [Unknown]
  - Hypothyroidism [Unknown]
  - Memory impairment [Unknown]
  - Mitral valve incompetence [Unknown]
  - Communication disorder [Unknown]
  - Heart rate irregular [Unknown]
  - Blood urine present [Unknown]
  - Pneumonia [Unknown]
  - Cerebral infarction [Unknown]
  - Wheelchair user [Unknown]
  - Gastritis [Unknown]
  - Vitamin B12 increased [Unknown]
  - Seizure [Unknown]
  - Thrombosis [Recovering/Resolving]
  - Asthenia [Unknown]
  - Calcinosis [Unknown]
  - Confusional state [Unknown]
  - Dizziness [Unknown]
  - Hallucination [Unknown]
  - Cholestasis [Unknown]
  - Tendonitis [Unknown]

NARRATIVE: CASE EVENT DATE: 20180101
